FAERS Safety Report 4797233-1 (Version None)
Quarter: 2005Q4

REPORT INFORMATION
  Report Type: 
  Country: None (occurrence: None)
  Receive Date: 20051013
  Receipt Date: 20051004
  Transmission Date: 20060501
  Serious: Yes (Death)
  Sender: FDA-Public Use
  Company Number: US-BRISTOL-MYERS SQUIBB COMPANY-13136445

PATIENT

DRUGS (3)
  1. CLONIDINE [Suspect]
     Route: 048
  2. POTASSIUM CHLORIDE [Suspect]
     Route: 048
  3. PHENYTOIN [Suspect]
     Route: 048

REACTIONS (1)
  - COMPLETED SUICIDE [None]
